FAERS Safety Report 16216491 (Version 1)
Quarter: 2019Q2

REPORT INFORMATION
  Report Type: Spontaneous
  Country: SE (occurrence: SE)
  Receive Date: 20190419
  Receipt Date: 20190419
  Transmission Date: 20190711
  Serious: Yes (Other)
  Sender: FDA-Public Use
  Company Number: SE-PFIZER INC-2019161369

PATIENT
  Age: 70 Year
  Sex: Male
  Weight: 96 kg

DRUGS (7)
  1. BEHEPAN [CYANOCOBALAMIN] [Concomitant]
     Dosage: UNK
  2. DOXAZOSIN [Suspect]
     Active Substance: DOXAZOSIN\DOXAZOSIN MESYLATE
     Indication: HYPERTENSION
     Dosage: 4 MG, 2X/DAY
  3. FINASTERID SANDOZ [Concomitant]
     Dosage: 5 MG, 1X/DAY
  4. SIMVASTATIN. [Concomitant]
     Active Substance: SIMVASTATIN
     Dosage: 40 MG, 1X/DAY
  5. KALEORID [Concomitant]
     Active Substance: POTASSIUM CHLORIDE
     Dosage: 2250 MG, 1X/DAY
  6. FURIX (FUROSEMIDE) [Concomitant]
     Active Substance: FUROSEMIDE
     Dosage: 40 MG, 1X/DAY
  7. LERCANIDIPINE [Concomitant]
     Active Substance: LERCANIDIPINE
     Dosage: 20 MG, 1X/DAY

REACTIONS (3)
  - Pain in jaw [Unknown]
  - Pulpitis dental [Recovered/Resolved]
  - Loose tooth [Unknown]

NARRATIVE: CASE EVENT DATE: 201903
